FAERS Safety Report 6770410-6 (Version None)
Quarter: 2010Q2

REPORT INFORMATION
  Report Type: 
  Country: None (occurrence: None)
  Receive Date: 20100615
  Receipt Date: 20100607
  Transmission Date: 20101027
  Serious: Yes (Other)
  Sender: FDA-Public Use
  Company Number: JP-PFIZER INC-2010070658

PATIENT
  Age: 38 Year
  Sex: Male

DRUGS (1)
  1. SOLANAX [Suspect]
     Dosage: 0.4MG DAILY
     Route: 048
     Dates: start: 20091101

REACTIONS (2)
  - BLOOD KETONE BODY INCREASED [None]
  - POLYCYTHAEMIA VERA [None]
